FAERS Safety Report 9701270 (Version 2)
Quarter: 2013Q4

REPORT INFORMATION
  Report Type: Spontaneous
  Country: US (occurrence: US)
  Receive Date: 20131121
  Receipt Date: 20131121
  Transmission Date: 20140711
  Serious: No
  Sender: FDA-Public Use
  Company Number: US-GILEAD-2008-0016221

PATIENT
  Age: 60 Year
  Sex: Female
  Weight: 83.46 kg

DRUGS (10)
  1. LETAIRIS [Suspect]
     Indication: PULMONARY ARTERIAL HYPERTENSION
     Route: 048
     Dates: start: 20080401
  2. WARFARIN [Concomitant]
     Route: 048
  3. LASIX [Concomitant]
     Route: 048
  4. PACERONE [Concomitant]
     Route: 048
  5. SPIRONOLACTONE [Concomitant]
     Route: 048
  6. DIGITEK [Concomitant]
     Route: 048
  7. METOLAZONE [Concomitant]
     Route: 048
  8. KLOR-CON [Concomitant]
     Route: 048
  9. LEVOTHYROXIN [Concomitant]
     Route: 048
  10. COLCHINE [Concomitant]
     Route: 048

REACTIONS (1)
  - Headache [None]
